FAERS Safety Report 6141126-4 (Version None)
Quarter: 2009Q2

REPORT INFORMATION
  Report Type: 
  Country: None (occurrence: None)
  Receive Date: 20090402
  Receipt Date: 20090330
  Transmission Date: 20091009
  Serious: No
  Sender: FDA-Public Use
  Company Number: US-B.I. PHARMACEUTICALS,INC./RIDGEFIELD-2009-BP-03188BP

PATIENT
  Sex: Male

DRUGS (16)
  1. SPIRIVA [Suspect]
     Indication: CHRONIC OBSTRUCTIVE PULMONARY DISEASE
     Dosage: 18MCG
     Route: 055
     Dates: start: 20050101
  2. THEOPHYLLINE [Concomitant]
  3. COZAAR [Concomitant]
  4. FINASRERIGE [Concomitant]
  5. FLOMAX [Concomitant]
  6. PLAVIX [Concomitant]
  7. LOPRESSOR [Concomitant]
  8. ALBUTEROL [Concomitant]
  9. ASPIRIN [Concomitant]
  10. ADVAIR HFA [Concomitant]
  11. LASIX [Concomitant]
  12. ALLOPURINOL [Concomitant]
  13. PROAIR HFA [Concomitant]
  14. PREDNISONE [Concomitant]
  15. POT.CHLOR [Concomitant]
  16. VICODIN [Concomitant]

REACTIONS (2)
  - DRUG INEFFECTIVE [None]
  - DYSPNOEA [None]
